FAERS Safety Report 5799214-8 (Version None)
Quarter: 2008Q3

REPORT INFORMATION
  Report Type: 
  Country: None (occurrence: None)
  Receive Date: 20080702
  Receipt Date: 20080620
  Transmission Date: 20090109
  Serious: Yes (Death, Other)
  Sender: FDA-Public Use
  Company Number: AU-PFIZER INC-2008040249

PATIENT
  Sex: Male
  Weight: 56 kg

DRUGS (4)
  1. SUTENT [Suspect]
     Indication: METASTATIC RENAL CELL CARCINOMA
     Route: 048
     Dates: start: 20070828, end: 20080401
  2. SUTENT [Suspect]
  3. ENDONE [Concomitant]
     Route: 048
     Dates: start: 20070828, end: 20080401
  4. LYRICA [Concomitant]
     Dosage: FREQ:DAILY
     Route: 048
     Dates: start: 20070705, end: 20080401

REACTIONS (3)
  - SPINAL CORD INJURY [None]
  - SPINAL OSTEOARTHRITIS [None]
  - SUDDEN DEATH [None]
